FAERS Safety Report 9291243 (Version 1)
Quarter: 2013Q2

REPORT INFORMATION
  Report Type: Report from Study
  Country: US (occurrence: US)
  Receive Date: 20130515
  Receipt Date: 20130515
  Transmission Date: 20140414
  Serious: Yes (Death, Hospitalization)
  Sender: FDA-Public Use
  Company Number: US-009507513-1305USA008172

PATIENT
  Age: 15 Year
  Sex: Female
  Weight: 76 kg

DRUGS (6)
  1. VORINOSTAT [Suspect]
     Dosage: 230 MG/M2/DOSE ON DAYS 1-5 CYCLE 1
     Route: 048
     Dates: start: 20120813, end: 20120921
  2. VORINOSTAT [Suspect]
     Dosage: 230 MG/M2/DOSE ON DAYS 1-5
     Route: 048
     Dates: start: 20130212, end: 20130311
  3. DEXAMETHASONE [Suspect]
     Dosage: 1.5 DF, QAM
  4. DEXAMETHASONE [Suspect]
     Dosage: 1 DF, QPM
  5. DIAMOX [Concomitant]
     Dosage: 250 MG, QD
     Route: 048
  6. FAMOTIDINE [Concomitant]
     Dosage: 20 MG, BID
     Route: 048

REACTIONS (5)
  - Muscular weakness [Unknown]
  - Embolism [Unknown]
  - Dyspnoea [Recovered/Resolved]
  - Hyperglycaemia [Recovering/Resolving]
  - Malignant neoplasm progression [Fatal]
